FAERS Safety Report 10362541 (Version 1)
Quarter: 2014Q3

REPORT INFORMATION
  Report Type: Spontaneous
  Country: US (occurrence: US)
  Receive Date: 20140805
  Receipt Date: 20140805
  Transmission Date: 20150326
  Serious: Yes (Hospitalization)
  Sender: FDA-Public Use
  Company Number: PHHY2014US094484

PATIENT
  Age: 70 Year
  Sex: Male

DRUGS (1)
  1. DICLOFENAC [Suspect]
     Active Substance: DICLOFENAC
     Indication: OSTEOARTHRITIS
     Dosage: 75 MG, DAILY
     Route: 048

REACTIONS (12)
  - Abdominal distension [Recovered/Resolved]
  - Pancreatic disorder [Recovered/Resolved]
  - Gastrointestinal inflammation [Unknown]
  - Gastrointestinal disorder [Recovered/Resolved]
  - Lipase increased [Unknown]
  - Abdominal pain upper [Recovered/Resolved]
  - Duodenal ulcer [Unknown]
  - Intra-abdominal pressure increased [Unknown]
  - Amylase increased [Unknown]
  - Nausea [Unknown]
  - Duodenal stenosis [Recovered/Resolved]
  - Pancreatitis acute [Unknown]
